FAERS Safety Report 18749770 (Version 4)
Quarter: 2021Q2

REPORT INFORMATION
  Report Type: Spontaneous
  Country: CA (occurrence: CA)
  Receive Date: 20210117
  Receipt Date: 20210405
  Transmission Date: 20210717
  Serious: Yes (Other)
  Sender: FDA-Public Use
  Company Number: CA-CELLTRION INC.-2019CA019038

PATIENT

DRUGS (11)
  1. INFLECTRA [Suspect]
     Active Substance: INFLIXIMAB-DYYB
     Indication: CROHN^S DISEASE
     Dosage: 300 MG Q (EVERY) 2, 6  WEEKS, THEN EVERY 8 WEEKS
     Route: 042
     Dates: start: 20190122
  2. INFLECTRA [Suspect]
     Active Substance: INFLIXIMAB-DYYB
     Dosage: 300 MG Q (EVERY) 2, 6  WEEKS, THEN EVERY 8 WEEKS
     Route: 042
     Dates: start: 20190903
  3. CALCIUM [Concomitant]
     Active Substance: CALCIUM
     Dosage: UNK
     Route: 065
  4. VITAMIN K [Concomitant]
     Active Substance: PHYTONADIONE
     Dosage: UNK
     Route: 065
  5. INFLECTRA [Suspect]
     Active Substance: INFLIXIMAB-DYYB
     Dosage: 300 MG Q (EVERY) 2, 6  WEEKS, THEN EVERY 8 WEEKS
     Route: 042
     Dates: start: 20190207
  6. INFLECTRA [Suspect]
     Active Substance: INFLIXIMAB-DYYB
     Dosage: 300 MG Q (EVERY) 2, 6  WEEKS, THEN EVERY 8 WEEKS
     Route: 042
     Dates: start: 20190702
  7. INFLECTRA [Suspect]
     Active Substance: INFLIXIMAB-DYYB
     Dosage: 300 MG Q (EVERY) 2, 6  WEEKS, THEN EVERY 8 WEEKS
     Route: 042
     Dates: start: 20201126
  8. INFLECTRA [Suspect]
     Active Substance: INFLIXIMAB-DYYB
     Dosage: 300 MG Q (EVERY) 2, 6  WEEKS, THEN EVERY 8 WEEKS
     Route: 042
     Dates: start: 20210122
  9. INFLECTRA [Suspect]
     Active Substance: INFLIXIMAB-DYYB
     Dosage: 300 MG Q (EVERY) 2, 6  WEEKS, THEN EVERY 8 WEEKS
     Route: 042
     Dates: start: 20191029
  10. INFLECTRA [Suspect]
     Active Substance: INFLIXIMAB-DYYB
     Dosage: 300 MG Q (EVERY) 2, 6  WEEKS, THEN EVERY 8 WEEKS
     Route: 042
     Dates: start: 20190502
  11. IRON [Concomitant]
     Active Substance: IRON
     Dosage: UNK (INFUSIONS)
     Route: 065

REACTIONS (10)
  - Hypertension [Unknown]
  - Fatigue [Unknown]
  - Dry skin [Unknown]
  - Rash [Recovered/Resolved]
  - Pruritus [Unknown]
  - Oral infection [Unknown]
  - Weight decreased [Unknown]
  - Dyspnoea [Recovered/Resolved]
  - Infusion related reaction [Unknown]
  - Osteomyelitis [Unknown]

NARRATIVE: CASE EVENT DATE: 20190207
